FAERS Safety Report 15836813 (Version 1)
Quarter: 2019Q1

REPORT INFORMATION
  Report Type: Spontaneous
  Country: US (occurrence: US)
  Receive Date: 20190117
  Receipt Date: 20190117
  Transmission Date: 20190417
  Serious: Yes (Other)
  Sender: FDA-Public Use
  Company Number: US-TEVA-2018-US-990345

PATIENT
  Sex: Female

DRUGS (1)
  1. AZITHROMYCIN TEVA [Suspect]
     Active Substance: AZITHROMYCIN
     Route: 065

REACTIONS (2)
  - Dyspnoea [Unknown]
  - Adverse event [Unknown]
